FAERS Safety Report 9511455 (Version 1)
Quarter: 2013Q3

REPORT INFORMATION
  Report Type: Spontaneous
  Country: US (occurrence: None)
  Receive Date: 20130909
  Receipt Date: 20130909
  Transmission Date: 20140515
  Serious: Yes (Other)
  Sender: FDA-Public Use
  Company Number: None

PATIENT
  Age: 56 Year
  Sex: Female
  Weight: 65.77 kg

DRUGS (1)
  1. KENALOG-40 INJ [Suspect]
     Indication: MORTON^S NEURALGIA

REACTIONS (5)
  - Cushingoid [None]
  - Contusion [None]
  - Skin atrophy [None]
  - Alopecia [None]
  - Frustration [None]
